FAERS Safety Report 5395487-4 (Version None)
Quarter: 2007Q3

REPORT INFORMATION
  Report Type: 
  Country: None (occurrence: None)
  Receive Date: 20070724
  Receipt Date: 20070717
  Transmission Date: 20080115
  Serious: Yes (Other)
  Sender: FDA-Public Use
  Company Number: US-JNJFOC-20070704087

PATIENT
  Age: 45 Year
  Sex: Male

DRUGS (3)
  1. TOPAMAX [Suspect]
     Indication: DRUG DEPENDENCE
     Route: 048
  2. TOPAMAX [Suspect]
     Indication: BIPOLAR DISORDER
     Route: 048
  3. CREATINE SUPPLEMENT [Concomitant]

REACTIONS (2)
  - BLOOD CREATININE INCREASED [None]
  - THERAPEUTIC RESPONSE UNEXPECTED [None]
